FAERS Safety Report 6291368-2 (Version None)
Quarter: 2009Q3

REPORT INFORMATION
  Report Type: 
  Country: None (occurrence: None)
  Receive Date: 20090730
  Receipt Date: 20090722
  Transmission Date: 20100115
  Serious: Yes (Other)
  Sender: FDA-Public Use
  Company Number: IL-GENENTECH-286210

PATIENT

DRUGS (4)
  1. BEVACIZUMAB [Suspect]
     Indication: MACULAR DEGENERATION
     Dosage: UNK MG/ML, Q6W
     Route: 031
  2. ESRACAIN [Concomitant]
     Indication: DRUG USE FOR UNKNOWN INDICATION
     Dosage: UNK
  3. BENOXINATE HYDROCHLORIDE [Concomitant]
     Indication: DRUG USE FOR UNKNOWN INDICATION
     Dosage: UNK
  4. BETADINE [Concomitant]
     Indication: DRUG USE FOR UNKNOWN INDICATION
     Dosage: UNK

REACTIONS (4)
  - EYE PAIN [None]
  - IRIDOCYCLITIS [None]
  - PUNCTATE KERATITIS [None]
  - RETINAL HAEMORRHAGE [None]
